FAERS Safety Report 9113873 (Version 1)
Quarter: 2013Q1

REPORT INFORMATION
  Report Type: Report from Study
  Country: US (occurrence: US)
  Receive Date: 20130129
  Receipt Date: 20130129
  Transmission Date: 20140127
  Serious: No
  Sender: FDA-Public Use
  Company Number: US-ABBOTT-12P-163-0941875-00

PATIENT
  Age: 45 Year
  Sex: Female

DRUGS (10)
  1. HUMIRA 40 MG/0.8 ML PEN [Suspect]
     Indication: RHEUMATOID ARTHRITIS
     Dates: start: 20120515
  2. CREAM [Concomitant]
     Indication: PRURITUS
  3. CREAM [Concomitant]
     Indication: ECZEMA
  4. BACLOFEN [Concomitant]
     Indication: RHEUMATOID ARTHRITIS
     Route: 048
  5. PILLS [Concomitant]
     Indication: PRURITUS
  6. PILLS [Concomitant]
     Indication: ECZEMA
  7. SULFASALAZINE [Concomitant]
     Indication: PRODUCT USED FOR UNKNOWN INDICATION
     Dosage: 2 TABLETS 3 X DAILY
     Route: 048
  8. HYDROCODONE [Concomitant]
     Indication: PAIN
     Dosage: 500MG AS NEEDED
     Route: 048
  9. FOLIC ACID [Concomitant]
     Indication: RHEUMATOID ARTHRITIS
     Route: 048
  10. OMEPRAZOLE [Concomitant]
     Indication: GASTRIC DISORDER
     Dosage: DAILY
     Route: 048

REACTIONS (2)
  - Rash erythematous [Not Recovered/Not Resolved]
  - Injection site rash [Not Recovered/Not Resolved]
